FAERS Safety Report 5269071-7 (Version None)
Quarter: 2007Q1

REPORT INFORMATION
  Report Type: 
  Country: None (occurrence: None)
  Receive Date: 20070319
  Receipt Date: 20070305
  Transmission Date: 20070707
  Serious: Yes (Other)
  Sender: FDA-Public Use
  Company Number: GB-ROCHE-486596

PATIENT
  Age: 48 Year
  Sex: Female
  Weight: 107.9 kg

DRUGS (3)
  1. XENICAL [Suspect]
     Indication: OBESITY
     Route: 048
     Dates: start: 20060716
  2. RAMIPRIL [Concomitant]
     Route: 048
  3. 1 CONCOMITANT DRUG [Concomitant]

REACTIONS (1)
  - BLOOD PRESSURE INCREASED [None]
